FAERS Safety Report 16212281 (Version 1)
Quarter: 2019Q2

REPORT INFORMATION
  Report Type: Spontaneous
  Country: CN (occurrence: CN)
  Receive Date: 20190418
  Receipt Date: 20190418
  Transmission Date: 20190711
  Serious: Yes (Other)
  Sender: FDA-Public Use
  Company Number: CN-BAXTER-2019BAX007572

PATIENT
  Age: 52 Year
  Sex: Male
  Weight: 53 kg

DRUGS (9)
  1. VINDESINE SULFATE [Suspect]
     Active Substance: VINDESINE SULFATE
     Dosage: VINDESINE SULFATE 4.5 MG + SODIUM CHLORIDE 20 ML
     Route: 041
     Dates: start: 20190318, end: 20190318
  2. EPIRUBICIN HYDROCHLORIDE. [Suspect]
     Active Substance: EPIRUBICIN HYDROCHLORIDE
     Indication: NODAL MARGINAL ZONE B-CELL LYMPHOMA
     Dosage: 1-4 COURSES
     Route: 041
  3. ENDOXAN [Suspect]
     Active Substance: CYCLOPHOSPHAMIDE
     Dosage: CYCLOPHOSPHAMIDE 1.15 G + SODIUM CHLORIDE 100 ML
     Route: 041
     Dates: start: 20190318, end: 20190318
  4. ENDOXAN [Suspect]
     Active Substance: CYCLOPHOSPHAMIDE
     Indication: NODAL MARGINAL ZONE B-CELL LYMPHOMA
     Dosage: 1-4 COURSES
     Route: 041
  5. EPIRUBICIN HYDROCHLORIDE. [Suspect]
     Active Substance: EPIRUBICIN HYDROCHLORIDE
     Dosage: EPIRUBICIN HYDROCHLORIDE 115 MG + GLUCOSE INJECTION 250 ML
     Route: 041
     Dates: start: 20190318, end: 20190318
  6. VINDESINE SULFATE [Suspect]
     Active Substance: VINDESINE SULFATE
     Indication: NODAL MARGINAL ZONE B-CELL LYMPHOMA
     Dosage: 1-4 COURSES
     Route: 041
  7. GLUCOSE [Suspect]
     Active Substance: DEXTROSE
     Indication: MEDICATION DILUTION
     Dosage: EPIRUBICIN HYDROCHLORIDE 115 MG + GLUCOSE INJECTION 250 ML
     Route: 041
     Dates: start: 20190318, end: 20190318
  8. SODIUM CHLORIDE. [Suspect]
     Active Substance: SODIUM CHLORIDE
     Indication: MEDICATION DILUTION
     Dosage: CYCLOPHOSPHAMIDE 1.15 G + SODIUM CHLORIDE 100 ML
     Route: 041
     Dates: start: 20190318, end: 20190318
  9. SODIUM CHLORIDE. [Suspect]
     Active Substance: SODIUM CHLORIDE
     Indication: MEDICATION DILUTION
     Dosage: VINDESINE SULFATE 4.5 MG + SODIUM CHLORIDE 20 ML
     Route: 041
     Dates: start: 20190318, end: 20190318

REACTIONS (2)
  - Disease progression [Unknown]
  - Bone marrow failure [Recovering/Resolving]

NARRATIVE: CASE EVENT DATE: 20190329
